FAERS Safety Report 6816520-6 (Version None)
Quarter: 2010Q3

REPORT INFORMATION
  Report Type: 
  Country: None (occurrence: None)
  Receive Date: 20100706
  Receipt Date: 20100311
  Transmission Date: 20110219
  Serious: Yes (Hospitalization)
  Sender: FDA-Public Use
  Company Number: US-ASTRAZENECA-2006UW19550

PATIENT
  Age: 15617 Day
  Sex: Female
  Weight: 122.5 kg

DRUGS (15)
  1. SEROQUEL [Suspect]
     Indication: INSOMNIA
     Route: 048
     Dates: start: 19990101
  2. SEROQUEL [Suspect]
     Route: 048
     Dates: start: 20060601
  3. SEROQUEL [Suspect]
     Route: 048
     Dates: start: 20010416
  4. ABILIFY [Concomitant]
     Dates: start: 20031029, end: 20050908
  5. CLOZARIL [Concomitant]
  6. NAVANE [Concomitant]
  7. THORAZINE [Concomitant]
  8. ZYPREXA [Concomitant]
  9. TRAZODONE HCL [Concomitant]
     Dates: start: 20010320
  10. CARBAMAZEPINE [Concomitant]
     Dates: start: 20010320
  11. LEVOTHROID [Concomitant]
     Dosage: 100 MCG
     Dates: start: 20010320
  12. EFFEXOR XR [Concomitant]
     Dates: start: 20010323
  13. AMBIEN [Concomitant]
     Dates: start: 20010323
  14. CLONAZEPAM [Concomitant]
     Dates: start: 20010323
  15. PREMARIN [Concomitant]
     Dates: start: 20010405

REACTIONS (8)
  - CROHN'S DISEASE [None]
  - HYPOKALAEMIA [None]
  - ILEUS [None]
  - INTESTINAL OBSTRUCTION [None]
  - POLYARTHRITIS [None]
  - RHEUMATOID ARTHRITIS [None]
  - SMALL INTESTINAL OBSTRUCTION [None]
  - TYPE 2 DIABETES MELLITUS [None]
